FAERS Safety Report 15271863 (Version 1)
Quarter: 2018Q3

REPORT INFORMATION
  Report Type: Report from Study
  Country: BR (occurrence: BR)
  Receive Date: 20180813
  Receipt Date: 20180813
  Transmission Date: 20181010
  Serious: Yes (Other)
  Sender: FDA-Public Use
  Company Number: PHHY2017BR167665

PATIENT
  Age: 86 Year
  Sex: Male
  Weight: 70 kg

DRUGS (1)
  1. ACLASTA [Suspect]
     Active Substance: ZOLEDRONIC ACID
     Indication: OSTEOPOROSIS
     Dosage: 1 DF, Q12MO
     Route: 042
     Dates: start: 20171010

REACTIONS (5)
  - Pyrexia [Unknown]
  - Malaise [Unknown]
  - Myocardial infarction [Recovered/Resolved with Sequelae]
  - Gastric haemorrhage [Recovered/Resolved with Sequelae]
  - Cognitive disorder [Not Recovered/Not Resolved]

NARRATIVE: CASE EVENT DATE: 201801
